FAERS Safety Report 5724336-7 (Version None)
Quarter: 2008Q2

REPORT INFORMATION
  Report Type: 
  Country: None (occurrence: None)
  Receive Date: 20080430
  Receipt Date: 20080421
  Transmission Date: 20081010
  Serious: Yes (Other)
  Sender: FDA-Public Use
  Company Number: US-PFIZER INC-2008000488

PATIENT
  Sex: Female
  Weight: 52.6 kg

DRUGS (8)
  1. SUTENT [Suspect]
     Indication: RENAL CELL CARCINOMA
     Route: 048
     Dates: start: 20071116, end: 20071130
  2. VYTORIN [Concomitant]
  3. NORVASC [Concomitant]
  4. BISOPROLOL FUMARATE [Concomitant]
  5. ACETYLSALICYLIC ACID SRT [Concomitant]
  6. MIACALCIN [Concomitant]
  7. VITAMIN CAP [Concomitant]
  8. MIRTAZAPINE [Concomitant]

REACTIONS (3)
  - DEHYDRATION [None]
  - DYSPNOEA [None]
  - JAUNDICE [None]
